FAERS Safety Report 8607447-8 (Version None)
Quarter: 2012Q3

REPORT INFORMATION
  Report Type: 
  Country: None (occurrence: None)
  Receive Date: 20120821
  Receipt Date: 20120809
  Transmission Date: 20120928
  Serious: Yes (Hospitalization)
  Sender: FDA-Public Use
  Company Number: SE-CELGENEUS-150-21880-12081128

PATIENT
  Sex: Male
  Weight: 86.2 kg

DRUGS (3)
  1. MORPHINE [Concomitant]
     Route: 048
  2. DALTEPARIN SODIUM [Concomitant]
     Route: 058
     Dates: start: 20120713
  3. REVLIMID [Suspect]
     Dosage: 1 CAPSULE
     Route: 048
     Dates: start: 20120713, end: 20120727

REACTIONS (1)
  - SOMNOLENCE [None]
